FAERS Safety Report 8535552-3 (Version None)
Quarter: 2012Q3

REPORT INFORMATION
  Report Type: 
  Country: None (occurrence: None)
  Receive Date: 20120717
  Receipt Date: 20120717
  Transmission Date: 20120928
  Serious: Yes (Hospitalization)
  Sender: FDA-Public Use
  Company Number: None

PATIENT
  Sex: Female
  Weight: 12.4 kg

DRUGS (4)
  1. CYCLOPHOSPHAMIDE [Suspect]
     Dosage: 36 MG
  2. DOXORUBICIN HYDROCHLORIDE [Suspect]
     Dosage: 27 MG
  3. VINCRISTINE SULFATE [Suspect]
     Dosage: .9 MG
  4. MESNA [Suspect]
     Dosage: 145 MG

REACTIONS (9)
  - UNRESPONSIVE TO STIMULI [None]
  - PLEURAL EFFUSION [None]
  - MENTAL STATUS CHANGES [None]
  - COUGH [None]
  - OXYGEN SATURATION DECREASED [None]
  - APNOEA [None]
  - DYSPNOEA [None]
  - ANAPHYLACTIC REACTION [None]
  - ACUTE RESPIRATORY DISTRESS SYNDROME [None]
